FAERS Safety Report 4952260-6 (Version None)
Quarter: 2006Q1

REPORT INFORMATION
  Report Type: 
  Country: None (occurrence: None)
  Receive Date: 20060313
  Receipt Date: 20060228
  Transmission Date: 20060701
  Serious: Yes (Death, Hospitalization)
  Sender: FDA-Public Use
  Company Number: WSDF_00524

PATIENT
  Age: 66 Year
  Sex: Male

DRUGS (8)
  1. WINRHO SDF [Suspect]
     Indication: THROMBOCYTOPENIC PURPURA
     Dosage: 75 MCG/KG ONCE IV
     Route: 042
     Dates: start: 20030512, end: 20030512
  2. TARCOLIMUS [Concomitant]
  3. CELLCEPT [Concomitant]
  4. MEDROL [Concomitant]
  5. GANCICLOVIR [Concomitant]
  6. PROTONIX [Concomitant]
  7. ACETYLSALICYLIC ACID SRT [Concomitant]
  8. NEUPOGN [Concomitant]

REACTIONS (17)
  - ACUTE MYOCARDIAL INFARCTION [None]
  - ASTHENIA [None]
  - BLOOD CULTURE POSITIVE [None]
  - COMPLICATIONS OF TRANSPLANTED LIVER [None]
  - COOMBS DIRECT TEST POSITIVE [None]
  - DISSEMINATED INTRAVASCULAR COAGULATION [None]
  - FATIGUE [None]
  - HAEMOLYSIS [None]
  - HEPATIC FAILURE [None]
  - KLEBSIELLA INFECTION [None]
  - LETHARGY [None]
  - MALAISE [None]
  - MULTI-ORGAN FAILURE [None]
  - PANCYTOPENIA [None]
  - RENAL FAILURE [None]
  - RESPIRATORY FAILURE [None]
  - RHESUS ANTIBODIES POSITIVE [None]
